FAERS Safety Report 13016940 (Version 1)
Quarter: 2016Q4

REPORT INFORMATION
  Report Type: Spontaneous
  Country: PL (occurrence: PL)
  Receive Date: 20161212
  Receipt Date: 20161212
  Transmission Date: 20170207
  Serious: Yes (Other)
  Sender: FDA-Public Use
  Company Number: PHHY2016PL167915

PATIENT
  Age: 78 Year
  Sex: Female

DRUGS (4)
  1. PAZOPANIB [Suspect]
     Active Substance: PAZOPANIB
     Dosage: 400 MG, QD
     Route: 065
  2. PAZOPANIB [Suspect]
     Active Substance: PAZOPANIB
     Dosage: UNK
     Route: 065
     Dates: start: 201501, end: 20160220
  3. PAZOPANIB [Suspect]
     Active Substance: PAZOPANIB
     Indication: RENAL CANCER
     Dosage: UNK
     Route: 065
     Dates: start: 20130620
  4. PAMIDRONIC ACID [Concomitant]
     Active Substance: PAMIDRONIC ACID
     Indication: PRODUCT USED FOR UNKNOWN INDICATION
     Route: 042

REACTIONS (6)
  - Arteriospasm coronary [Unknown]
  - Myocardial infarction [Unknown]
  - Palmar-plantar erythrodysaesthesia syndrome [Unknown]
  - Hypothyroidism [Unknown]
  - Metastases to bone [Unknown]
  - Diarrhoea [Unknown]

NARRATIVE: CASE EVENT DATE: 201412
